FAERS Safety Report 5890230-4 (Version None)
Quarter: 2008Q3

REPORT INFORMATION
  Report Type: 
  Country: None (occurrence: None)
  Receive Date: 20080919
  Receipt Date: 20080909
  Transmission Date: 20090109
  Serious: Yes (Hospitalization)
  Sender: FDA-Public Use
  Company Number: JP-PFIZER INC-2008076563

PATIENT
  Age: 54 Year
  Sex: Female

DRUGS (2)
  1. SULFASALAZINE [Suspect]
     Indication: RHEUMATOID ARTHRITIS
     Dosage: DAILY DOSE:1GRAM
     Dates: start: 20060201
  2. PREDNISOLONE [Concomitant]

REACTIONS (1)
  - CONJUNCTIVITIS [None]
